FAERS Safety Report 5298082-0 (Version None)
Quarter: 2007Q2

REPORT INFORMATION
  Report Type: 
  Country: None (occurrence: None)
  Receive Date: 20070416
  Receipt Date: 20070403
  Transmission Date: 20071010
  Serious: Yes (Hospitalization)
  Sender: FDA-Public Use
  Company Number: PHFR2007GB01228

PATIENT
  Age: 74 Year
  Sex: Male

DRUGS (12)
  1. ZOMETA [Suspect]
     Indication: BONE PAIN
     Dosage: TOTAL DOSE OF 4MG
     Route: 042
     Dates: start: 20070208, end: 20070208
  2. AMITRIPTYLINE HCL [Concomitant]
     Dosage: 25 MG, QD
     Route: 065
  3. DEXAMETHASONE [Concomitant]
     Dosage: 2 DF, BID
     Route: 065
  4. DICLOFENAC [Concomitant]
     Dosage: 75 MG, BID
     Route: 065
  5. ESCITALOPRAM [Concomitant]
     Dosage: 5 MG, QD
     Route: 065
  6. FUROSEMIDE [Concomitant]
     Dosage: 2 DF, BID
     Route: 065
  7. LANSOPRAZOLE [Concomitant]
     Dosage: 30 MG, QD
     Route: 065
  8. LEVOCETIRIZINE [Concomitant]
     Indication: HYPERSENSITIVITY
     Dosage: 5 MG, QD
     Route: 065
  9. LORAZEPAM [Concomitant]
     Dosage: 1 MG, PRN
     Route: 060
  10. MOVICOL [Concomitant]
     Dosage: 1 DF, QD
     Route: 065
  11. MS CONTIN [Concomitant]
     Dosage: 230 MG, BID
     Route: 065
  12. ORAMORPH SR [Concomitant]
     Indication: PAIN
     Dosage: 40 MG, PRN
     Route: 065

REACTIONS (4)
  - DIARRHOEA [None]
  - INFLUENZA LIKE ILLNESS [None]
  - LOSS OF CONSCIOUSNESS [None]
  - PYREXIA [None]
